FAERS Safety Report 14981544 (Version 1)
Quarter: 2018Q2

REPORT INFORMATION
  Report Type: Spontaneous
  Country: US (occurrence: US)
  Receive Date: 20180607
  Receipt Date: 20180607
  Transmission Date: 20180711
  Serious: No
  Sender: FDA-Public Use
  Company Number: US-BIOGEN-2018BI00585938

PATIENT
  Sex: Female

DRUGS (2)
  1. ASPIRIN. [Suspect]
     Active Substance: ASPIRIN
     Indication: FLUSHING
     Route: 050
     Dates: start: 20180518
  2. TECFIDERA [Suspect]
     Active Substance: DIMETHYL FUMARATE
     Indication: MULTIPLE SCLEROSIS
     Dosage: STARTING DOSE
     Route: 048

REACTIONS (6)
  - Malaise [Recovered/Resolved]
  - Body temperature increased [Recovered/Resolved]
  - Pain [Recovered/Resolved]
  - Flushing [Recovered/Resolved]
  - Gastric disorder [Not Recovered/Not Resolved]
  - Gastrointestinal disorder [Unknown]
